FAERS Safety Report 23530724 (Version 2)
Quarter: 2024Q1

REPORT INFORMATION
  Report Type: Report from Study
  Country: US (occurrence: US)
  Receive Date: 20240216
  Receipt Date: 20240307
  Transmission Date: 20240410
  Serious: Yes (Other)
  Sender: FDA-Public Use
  Company Number: US-ABBVIE-5630546

PATIENT
  Sex: Female

DRUGS (1)
  1. LINZESS [Suspect]
     Active Substance: LINACLOTIDE
     Indication: Neurogenic bowel
     Dosage: FORM STRENGTH: 290 MICROGRAM
     Route: 048
     Dates: end: 202211

REACTIONS (5)
  - Spinal operation [Unknown]
  - Neurogenic bowel [Recovered/Resolved]
  - Spinal column injury [Unknown]
  - Procedural complication [Unknown]
  - Device breakage [Unknown]

NARRATIVE: CASE EVENT DATE: 20200101
